FAERS Safety Report 15016216 (Version 3)
Quarter: 2018Q3

REPORT INFORMATION
  Report Type: Spontaneous
  Country: US (occurrence: US)
  Receive Date: 20180615
  Receipt Date: 20180704
  Transmission Date: 20181010
  Serious: No
  Sender: FDA-Public Use
  Company Number: US-PFIZER INC-2018243346

PATIENT
  Age: 60 Year
  Sex: Female

DRUGS (5)
  1. SULFASALAZINE. [Suspect]
     Active Substance: SULFASALAZINE
     Dosage: 1 DF, 2X/DAY (ONE TABLET TWO TIMES A DAY FOR FIVE DAY)
  2. OXYCODONE [Concomitant]
     Active Substance: OXYCODONE
     Indication: PAIN
     Dosage: UNK, AS NEEDED (15 MG TABLET EVERY 4 TO 6 HOURS AS NEEDED FOR PAIN)
     Dates: start: 20180210
  3. SULFASALAZINE. [Suspect]
     Active Substance: SULFASALAZINE
     Dosage: UNK, 1X/DAY (ONCE A DAY FOR 5 DAYS)
  4. ENDOCET [Concomitant]
     Active Substance: ACETAMINOPHEN\OXYCODONE HYDROCHLORIDE
     Indication: PAIN
     Dosage: 7.5 ENDOCET /325 TYLENOL MG TABLET 6 TABLETS A DAY
     Dates: start: 2010, end: 20180103
  5. SULFASALAZINE. [Suspect]
     Active Substance: SULFASALAZINE
     Indication: RHEUMATOID ARTHRITIS
     Dosage: 1000 MG, 2X/DAY (500 MG TWO TABLETS TWICE A DAY SWALLOW WHOLE DON^T CHEW)
     Route: 048
     Dates: start: 2016

REACTIONS (4)
  - Pain [Recovered/Resolved]
  - Intentional product misuse [Recovered/Resolved]
  - Drug hypersensitivity [Recovered/Resolved]
  - Pruritus [Recovering/Resolving]
